FAERS Safety Report 4964471-4 (Version None)
Quarter: 2006Q1

REPORT INFORMATION
  Report Type: 
  Country: None (occurrence: None)
  Receive Date: 20060331
  Receipt Date: 20060314
  Transmission Date: 20060701
  Serious: Yes (Death, Hospitalization)
  Sender: FDA-Public Use
  Company Number: US200602001658

PATIENT
  Age: 84 Year
  Sex: Male
  Weight: 62.6 kg

DRUGS (6)
  1. SOMATROPIN                       (SOMATROPIN) [Suspect]
     Indication: HYPOPITUITARISM
     Dosage: 0.68 IU, DAILY (1/D)
     Dates: start: 19990301, end: 20050828
  2. COUMADIN [Concomitant]
  3. COZAAR [Concomitant]
  4. SYNTHROID [Concomitant]
  5. PREDNISONE TAB [Concomitant]
  6. MEVACOR [Concomitant]

REACTIONS (10)
  - ADRENOCORTICAL INSUFFICIENCY ACUTE [None]
  - CARDIAC ARREST [None]
  - DEHYDRATION [None]
  - DYSPNOEA [None]
  - FATIGUE [None]
  - HAEMATEMESIS [None]
  - PLEURAL EFFUSION [None]
  - RENAL FAILURE ACUTE [None]
  - URINARY TRACT INFECTION [None]
  - UROSEPSIS [None]
